FAERS Safety Report 8687866 (Version 2)
Quarter: 2012Q4

REPORT INFORMATION
  Report Type: 
  Country: US (occurrence: US)
  Receive Date: 20120727
  Receipt Date: 20120910
  Transmission Date: 20130627
  Serious: Yes (Hospitalization)
  Sender: FDA-Public Use
  Company Number: US-SANOFI-AVENTIS-2012SA051091

PATIENT
  Age: 58 Year
  Sex: Male
  Weight: 90.7 kg

DRUGS (6)
  1. PLAVIX [Suspect]
     Indication: ARTERIAL OCCLUSION
  2. LIPITOR /UNK/ [Suspect]
     Indication: HEART ATTACK
     Dates: start: 2007
  3. LISINOPRIL [Suspect]
     Indication: BLOOD PRESSURE
  4. ASPIRIN [Suspect]
     Indication: CARDIAC DISORDER NOS
  5. COREG [Suspect]
     Indication: STENT PLACEMENT
     Dates: start: 2008
  6. GLUCOTROL [Suspect]
     Indication: DIABETES
     Route: 065
     Dates: start: 1997

REACTIONS (5)
  - Coronary artery occlusion [Unknown]
  - Chest pain [Unknown]
  - Blood glucose increased [Unknown]
  - Stress [Unknown]
  - Myocardial infarction [Unknown]
